FAERS Safety Report 16047172 (Version 2)
Quarter: 2019Q2

REPORT INFORMATION
  Report Type: Spontaneous
  Country: DE (occurrence: DE)
  Receive Date: 20190307
  Receipt Date: 20190425
  Transmission Date: 20190711
  Serious: Yes (Death, Hospitalization, Other)
  Sender: FDA-Public Use
  Company Number: DE-BAYER-2019-044718

PATIENT
  Age: 61 Year
  Sex: Male

DRUGS (1)
  1. NEXAVAR [Suspect]
     Active Substance: SORAFENIB
     Indication: HEPATOCELLULAR CARCINOMA
     Dosage: 200 MG, BID
     Dates: start: 201805, end: 20180528

REACTIONS (8)
  - Neoplasm progression [Fatal]
  - Epistaxis [None]
  - Ascites [None]
  - Dyspnoea [None]
  - Hypertension [None]
  - Hepatic function abnormal [Fatal]
  - Abdominal pain [None]
  - Acute myocardial infarction [None]

NARRATIVE: CASE EVENT DATE: 201805
